FAERS Safety Report 7096521-6 (Version None)
Quarter: 2010Q4

REPORT INFORMATION
  Report Type: 
  Country: None (occurrence: None)
  Receive Date: 20101110
  Receipt Date: 20101110
  Transmission Date: 20110411
  Serious: Yes (Other)
  Sender: FDA-Public Use
  Company Number: None

PATIENT
  Age: 42 Year
  Sex: Female
  Weight: 117.9352 kg

DRUGS (1)
  1. BENTYL [Suspect]
     Indication: ABDOMINAL PAIN
     Dosage: 1 TO 2 CAPSULES QID PRN PO
     Route: 048
     Dates: start: 20101105, end: 20101109

REACTIONS (3)
  - CHEST PAIN [None]
  - DIZZINESS [None]
  - NAUSEA [None]
